FAERS Safety Report 23020346 (Version 1)
Quarter: 2023Q4

REPORT INFORMATION
  Report Type: Spontaneous
  Country: US (occurrence: None)
  Receive Date: 20231002
  Receipt Date: 20231002
  Transmission Date: 20240109
  Serious: Yes (Hospitalization)
  Sender: FDA-Public Use
  Company Number: None

PATIENT
  Age: 57 Year
  Sex: Female

DRUGS (49)
  1. TERIFLUNOMIDE [Suspect]
     Active Substance: TERIFLUNOMIDE
     Indication: Multiple sclerosis
     Dosage: FREQUENCY : DAILY;?
     Route: 048
     Dates: start: 20230423
  2. AIMOVIG [Concomitant]
     Active Substance: ERENUMAB-AOOE
  3. ALBUTEROL [Concomitant]
     Active Substance: ALBUTEROL
  4. AMMONIUM LAC LOT [Concomitant]
  5. ARIPIPRAZOLE [Concomitant]
     Active Substance: ARIPIPRAZOLE
  6. ASPIRIN [Concomitant]
     Active Substance: ASPIRIN
  7. AUBAGIO [Concomitant]
     Active Substance: TERIFLUNOMIDE
  8. BACLOFEN [Concomitant]
     Active Substance: BACLOFEN
  9. BAQSIMI ONE POW [Concomitant]
  10. BENTYL [Concomitant]
     Active Substance: DICYCLOMINE HYDROCHLORIDE
  11. BENZTROPINE [Concomitant]
     Active Substance: BENZTROPINE
  12. BREO ELLIPA [Concomitant]
  13. CICLOPIROX [Concomitant]
     Active Substance: CICLOPIROX
  14. DONEPEZIL TAB ODT [Concomitant]
  15. DONEPEZIL TAB HCL [Concomitant]
  16. DOXEPIN HCL CON [Concomitant]
  17. EPINEPHRINE [Concomitant]
     Active Substance: EPINEPHRINE
  18. ESTRADIOL DIS [Concomitant]
  19. FLUTICASONE [Concomitant]
  20. FOLIC ACID [Concomitant]
     Active Substance: FOLIC ACID
  21. FREESTYLE KIT FREEDOM [Concomitant]
  22. HUMALOG KWIK [Concomitant]
  23. HYDROXYCHLOROQUINE [Concomitant]
     Active Substance: HYDROXYCHLOROQUINE
  24. IPRATROPIUM [Concomitant]
  25. KEPPRA [Concomitant]
     Active Substance: LEVETIRACETAM
  26. LANTUS INJ [Concomitant]
  27. LANTUS SOLOS INJ [Concomitant]
  28. LEVETIRACETAM [Concomitant]
     Active Substance: LEVETIRACETAM
  29. LISINOPRIL [Concomitant]
     Active Substance: LISINOPRIL
  30. LISINOPRIL [Concomitant]
     Active Substance: LISINOPRIL
  31. LOPERAMIDE CAP [Concomitant]
  32. LOPERAMIDE SUS [Concomitant]
  33. LYRICA [Concomitant]
     Active Substance: PREGABALIN
  34. MONTELUKAST [Concomitant]
     Active Substance: MONTELUKAST SODIUM
  35. MYRBETRIQ [Concomitant]
     Active Substance: MIRABEGRON
  36. PANTOPRAZOLE SODIUM [Concomitant]
     Active Substance: PANTOPRAZOLE SODIUM
  37. PANTOPRAZOLE TAB 40MG [Concomitant]
  38. PREDNISONE [Concomitant]
     Active Substance: PREDNISONE
  39. SERTRALINE [Concomitant]
     Active Substance: SERTRALINE HYDROCHLORIDE
  40. SERTRATLINE TAB 50MG [Concomitant]
  41. SIMVASTATIN [Concomitant]
     Active Substance: SIMVASTATIN
  42. SIMVASTATIN [Concomitant]
     Active Substance: SIMVASTATIN
  43. SINGULAIR [Concomitant]
     Active Substance: MONTELUKAST SODIUM
  44. TIZANIDINE [Concomitant]
     Active Substance: TIZANIDINE
  45. TOPIRAMATE [Concomitant]
     Active Substance: TOPIRAMATE
  46. TRULICITY [Concomitant]
     Active Substance: DULAGLUTIDE
  47. VENTOLIN HFA [Concomitant]
     Active Substance: ALBUTEROL SULFATE
  48. VIBERZI [Concomitant]
     Active Substance: ELUXADOLINE
  49. XOLAIR [Concomitant]
     Active Substance: OMALIZUMAB

REACTIONS (2)
  - Hospitalisation [None]
  - Therapy interrupted [None]

NARRATIVE: CASE EVENT DATE: 20230802
